FAERS Safety Report 7691571-0 (Version None)
Quarter: 2011Q3

REPORT INFORMATION
  Report Type: 
  Country: None (occurrence: None)
  Receive Date: 20110818
  Receipt Date: 20110805
  Transmission Date: 20111222
  Serious: Yes (Hospitalization, Other)
  Sender: FDA-Public Use
  Company Number: US-UCBSA-038629

PATIENT
  Age: 45 Year
  Sex: Male

DRUGS (11)
  1. CARBATROL [Concomitant]
     Route: 048
  2. SOMATROPIN [Concomitant]
  3. HYDROCORTISONE [Concomitant]
  4. RISEDRONATE SODIUM [Concomitant]
  5. LACOSAMIDE [Suspect]
     Indication: PARTIAL SEIZURES
     Dosage: NIGHTLY, PREVIOUSLY UNKNOWN DOSE
  6. DESMOPRESSIN [Concomitant]
  7. CARBATROL [Concomitant]
     Dosage: 100 MG MORNING AND 200 MG EVENING
     Route: 048
  8. OXCARBAZEPINE [Concomitant]
     Dosage: 600 MG MORNING , 600 MG EVENING, 1200 MG EVERY BEDTIME
     Route: 048
  9. LEVOTHYROXINE SODIUM [Concomitant]
  10. CARBAMAZEPINE [Concomitant]
  11. ALFUZOSIN HCL [Concomitant]

REACTIONS (1)
  - ATRIOVENTRICULAR BLOCK SECOND DEGREE [None]
